FAERS Safety Report 24133157 (Version 1)
Quarter: 2024Q3

REPORT INFORMATION
  Report Type: Report from Study
  Country: US (occurrence: None)
  Receive Date: 20240724
  Receipt Date: 20240724
  Transmission Date: 20241016
  Serious: Yes (Hospitalization, Other)
  Sender: ASTRAZENECA
  Company Number: 2020SE25335

PATIENT
  Sex: Female

DRUGS (5)
  1. BRILINTA [Suspect]
     Active Substance: TICAGRELOR
     Indication: Stent placement
     Route: 048
     Dates: start: 2013
  2. WARFARIN [Concomitant]
     Active Substance: WARFARIN
  3. RITUXIMAB/PIDILIZUMAB [Concomitant]
  4. DEVICE\INSULIN NOS [Concomitant]
     Active Substance: DEVICE\INSULIN NOS
  5. JANTOVEN [Concomitant]
     Active Substance: WARFARIN SODIUM
     Indication: Blood disorder

REACTIONS (19)
  - Antiphospholipid syndrome [Unknown]
  - Cerebral thrombosis [Unknown]
  - Cardiac disorder [Unknown]
  - Myocardial infarction [Unknown]
  - Cardiac failure congestive [Unknown]
  - Cerebrovascular accident [Unknown]
  - Sepsis [Unknown]
  - Neoplasm malignant [Unknown]
  - Arterial occlusive disease [Unknown]
  - Blood triglycerides increased [Unknown]
  - Escherichia urinary tract infection [Unknown]
  - Type IIa hyperlipidaemia [Unknown]
  - Contusion [Unknown]
  - Blood urine present [Unknown]
  - Stiff person syndrome [Unknown]
  - Type 1 diabetes mellitus [Unknown]
  - Fatigue [Unknown]
  - Blood cholesterol increased [Unknown]
  - Hypokinesia [Unknown]
